FAERS Safety Report 20778371 (Version 1)
Quarter: 2022Q2

REPORT INFORMATION
  Report Type: Spontaneous
  Country: CN (occurrence: CN)
  Receive Date: 20220503
  Receipt Date: 20220503
  Transmission Date: 20220721
  Serious: Yes (Other)
  Sender: FDA-Public Use
  Company Number: CN-OTSUKA-2022_025654

PATIENT
  Age: 15 Year
  Sex: Female
  Weight: 49 kg

DRUGS (4)
  1. ABILIFY [Suspect]
     Active Substance: ARIPIPRAZOLE
     Indication: Major depression
     Dosage: 1 MG, QD
     Route: 048
     Dates: start: 20220404, end: 20220404
  2. ABILIFY [Suspect]
     Active Substance: ARIPIPRAZOLE
     Indication: Psychotic behaviour
  3. ZYPREXA [Suspect]
     Active Substance: OLANZAPINE
     Indication: Major depression
     Dosage: 7.5 MG, QD
     Route: 048
     Dates: start: 20220314, end: 20220401
  4. ZYPREXA [Suspect]
     Active Substance: OLANZAPINE
     Indication: Psychotic behaviour

REACTIONS (2)
  - Oedema [Recovering/Resolving]
  - Product use in unapproved indication [Unknown]

NARRATIVE: CASE EVENT DATE: 20220404
